FAERS Safety Report 24910994 (Version 1)
Quarter: 2025Q1

REPORT INFORMATION
  Report Type: Spontaneous
  Country: CN (occurrence: CN)
  Receive Date: 20250131
  Receipt Date: 20250131
  Transmission Date: 20250409
  Serious: Yes (Other)
  Sender: ROCHE
  Company Number: CN-ROCHE-10000187535

PATIENT
  Age: 58 Year
  Sex: Female
  Weight: 65 kg

DRUGS (3)
  1. BEVACIZUMAB [Suspect]
     Active Substance: BEVACIZUMAB
     Indication: Colon cancer
     Route: 040
     Dates: start: 20241106, end: 20241106
  2. RALTITREXED [Suspect]
     Active Substance: RALTITREXED
     Indication: Colon cancer
     Route: 040
     Dates: start: 20241106, end: 20241106
  3. IRINOTECAN HYDROCHLORIDE [Suspect]
     Active Substance: IRINOTECAN HYDROCHLORIDE
     Indication: Colon cancer
     Route: 040
     Dates: start: 20241106, end: 20241106

REACTIONS (1)
  - Liver injury [Recovering/Resolving]

NARRATIVE: CASE EVENT DATE: 20241129
